FAERS Safety Report 5022452-9 (Version None)
Quarter: 2006Q2

REPORT INFORMATION
  Report Type: 
  Country: None (occurrence: None)
  Receive Date: 20060605
  Receipt Date: 20060519
  Transmission Date: 20061013
  Serious: Yes (Other)
  Sender: FDA-Public Use
  Company Number: 2006-BP-05677RO

PATIENT
  Age: 16 Year
  Sex: Male

DRUGS (3)
  1. AZATHIOPRINE [Suspect]
     Indication: PROPHYLAXIS AGAINST TRANSPLANT REJECTION
     Dosage: 100 MG/D
     Dates: start: 19950501, end: 20000101
  2. PREDNISONE [Suspect]
     Indication: PROPHYLAXIS AGAINST TRANSPLANT REJECTION
     Dosage: 10 MG/D
     Dates: start: 19950501, end: 20000101
  3. CYCLOSPORINE [Suspect]
     Indication: PROPHYLAXIS AGAINST TRANSPLANT REJECTION
     Dosage: 200 MG/D
     Dates: start: 19950501, end: 20000101

REACTIONS (3)
  - HAEMODIALYSIS [None]
  - KIDNEY TRANSPLANT REJECTION [None]
  - MELANOCYTIC NAEVUS [None]
